FAERS Safety Report 9492956 (Version 1)
Quarter: 2013Q3

REPORT INFORMATION
  Report Type: Spontaneous
  Country: ZA (occurrence: ZA)
  Receive Date: 20130902
  Receipt Date: 20130902
  Transmission Date: 20140515
  Serious: Yes (Hospitalization)
  Sender: FDA-Public Use
  Company Number: ZA-ABBOTT-13X-143-1140228-00

PATIENT
  Age: 17 Year
  Sex: Male

DRUGS (2)
  1. EPILIM CR [Suspect]
     Indication: TEMPORAL LOBE EPILEPSY
     Dosage: EXTENDED RELEASE
     Route: 048
     Dates: start: 201308, end: 201308
  2. EPILIM CR [Suspect]
     Dosage: EXTENDED RELEASE
     Route: 048

REACTIONS (2)
  - Depressed level of consciousness [Recovered/Resolved]
  - Intentional overdose [Unknown]
